FAERS Safety Report 8612839-7 (Version None)
Quarter: 2012Q3

REPORT INFORMATION
  Report Type: 
  Country: None (occurrence: None)
  Receive Date: 20120822
  Receipt Date: 20120214
  Transmission Date: 20120928
  Serious: No
  Sender: FDA-Public Use
  Company Number: US-ASTRAZENECA-2011SE14763

PATIENT
  Age: 74 Year
  Sex: Female

DRUGS (6)
  1. SYMBICORT [Suspect]
     Dosage: 160/4.5, 2 PUFFS TWO TIMES A DAY
     Route: 055
  2. LISINOPRIL [Suspect]
     Route: 048
  3. NEXIUM [Suspect]
     Route: 048
  4. ATACAND [Suspect]
     Route: 048
  5. TOPROL-XL [Suspect]
     Route: 048
  6. SIMVASTATIN [Concomitant]

REACTIONS (14)
  - DRY MOUTH [None]
  - INSOMNIA [None]
  - HEADACHE [None]
  - DRUG HYPERSENSITIVITY [None]
  - ABDOMINAL PAIN UPPER [None]
  - DYSPNOEA [None]
  - MYALGIA [None]
  - FATIGUE [None]
  - NAUSEA [None]
  - OROPHARYNGEAL PAIN [None]
  - FLATULENCE [None]
  - COUGH [None]
  - EYE PRURITUS [None]
  - ASTHENIA [None]
